FAERS Safety Report 21666300 (Version 1)
Quarter: 2022Q4

REPORT INFORMATION
  Report Type: Spontaneous
  Country: PL (occurrence: PL)
  Receive Date: 20221201
  Receipt Date: 20221201
  Transmission Date: 20230113
  Serious: Yes (Other)
  Sender: FDA-Public Use
  Company Number: None

PATIENT
  Age: 52 Year
  Sex: Male
  Weight: 81 kg

DRUGS (1)
  1. METHOTREXATE [Suspect]
     Active Substance: METHOTREXATE
     Indication: Rheumatoid arthritis
     Dosage: 15-25 MG PER WEEK , FREQUENCY TIME : 1 WEEKS, DURATION : 3 YEARS
     Dates: start: 20110207, end: 201412

REACTIONS (1)
  - Liver injury [Recovered/Resolved]
